FAERS Safety Report 5221708-4 (Version None)
Quarter: 2007Q1

REPORT INFORMATION
  Report Type: 
  Country: None (occurrence: None)
  Receive Date: 20070129
  Receipt Date: 20070123
  Transmission Date: 20070707
  Serious: Yes (Death)
  Sender: FDA-Public Use
  Company Number: US-SHR-US-2006-031122

PATIENT
  Age: 29 Year
  Sex: Female
  Weight: 90.7 kg

DRUGS (1)
  1. YASMIN [Suspect]
     Indication: ORAL CONTRACEPTION
     Dosage: 1 TAB(S), 1X/DAY
     Route: 048

REACTIONS (9)
  - CARDIAC ARREST [None]
  - DILATATION VENTRICULAR [None]
  - INTESTINAL ISCHAEMIA [None]
  - INTRACARDIAC THROMBUS [None]
  - IRON DEFICIENCY ANAEMIA [None]
  - PULMONARY ARTERY THROMBOSIS [None]
  - PULMONARY EMBOLISM [None]
  - SPLENIC RUPTURE [None]
  - SYNCOPE [None]
